FAERS Safety Report 13013101 (Version 1)
Quarter: 2016Q4

REPORT INFORMATION
  Report Type: Spontaneous
  Country: US (occurrence: US)
  Receive Date: 20161209
  Receipt Date: 20161209
  Transmission Date: 20170207
  Serious: No
  Sender: FDA-Public Use
  Company Number: US-BIOGEN-2016BI00326334

PATIENT
  Sex: Male

DRUGS (1)
  1. TECFIDERA [Suspect]
     Active Substance: DIMETHYL FUMARATE
     Indication: AMYOTROPHIC LATERAL SCLEROSIS
     Dosage: STARTING DOSE
     Route: 065

REACTIONS (5)
  - Discomfort [Unknown]
  - Feeling hot [Unknown]
  - Erythema [Unknown]
  - Flushing [Unknown]
  - Intentional product use issue [Not Recovered/Not Resolved]
